FAERS Safety Report 13587395 (Version 18)
Quarter: 2019Q3

REPORT INFORMATION
  Report Type: Report from Study
  Country: US (occurrence: US)
  Receive Date: 20170526
  Receipt Date: 20190920
  Transmission Date: 20191004
  Serious: Yes (Life-Threatening, Hospitalization, Other)
  Sender: FDA-Public Use
  Company Number: US-ACTELION-A-US2015-129065

PATIENT
  Age: 58 Year
  Sex: Male
  Weight: 78.46 kg

DRUGS (42)
  1. ASPIRIN. [Concomitant]
     Active Substance: ASPIRIN
     Dosage: 81 MG, QD
     Route: 048
  2. ENOXAPARIN [Concomitant]
     Active Substance: ENOXAPARIN
  3. DEXTROMETHORPHAN HBR + GUAIFENESIN [Concomitant]
     Active Substance: DEXTROMETHORPHAN HYDROBROMIDE\GUAIFENESIN
  4. DOCUSATE [Concomitant]
     Active Substance: DOCUSATE
  5. MELOXICAM. [Concomitant]
     Active Substance: MELOXICAM
  6. TRAMADOL. [Concomitant]
     Active Substance: TRAMADOL
     Indication: PAIN
     Dosage: 50 MG, BID PRN
     Route: 048
  7. OPSUMIT [Suspect]
     Active Substance: MACITENTAN
     Dosage: 10 MG
     Route: 048
  8. LORATADINE. [Concomitant]
     Active Substance: LORATADINE
     Dosage: 10 MG, QD
     Route: 048
  9. TAMSULOSIN [Concomitant]
     Active Substance: TAMSULOSIN
     Dosage: .4 MG, QD
     Route: 048
     Dates: start: 20170515
  10. PANTOPRAZOLE [Concomitant]
     Active Substance: PANTOPRAZOLE
  11. MIRALAX [Concomitant]
     Active Substance: POLYETHYLENE GLYCOL 3350
  12. SILDENAFIL. [Concomitant]
     Active Substance: SILDENAFIL
     Dosage: 20 MG, TID
     Route: 048
  13. ALPRAZOLAM. [Concomitant]
     Active Substance: ALPRAZOLAM
     Indication: ANXIETY
     Dosage: 1 MG, BID PRN
     Route: 048
  14. PROMETHAZINE DM [Concomitant]
     Active Substance: DEXTROMETHORPHAN HYDROBROMIDE\PROMETHAZINE HYDROCHLORIDE
     Indication: COUGH
     Dosage: 5 ML, Q4HRS PRN
     Route: 048
  15. ASPIRIN. [Concomitant]
     Active Substance: ASPIRIN
     Dosage: 325 MG, QD
     Route: 048
  16. LASIX [Concomitant]
     Active Substance: FUROSEMIDE
     Dosage: UNK
     Dates: start: 20170515
  17. FENTANYL. [Concomitant]
     Active Substance: FENTANYL
     Dosage: UNK
     Dates: start: 20170515
  18. BENZONATATE. [Concomitant]
     Active Substance: BENZONATATE
  19. RANITIDINE. [Concomitant]
     Active Substance: RANITIDINE
     Dosage: 150 MG, BID
     Route: 048
  20. THIAMINE. [Concomitant]
     Active Substance: THIAMINE
  21. REVATIO [Concomitant]
     Active Substance: SILDENAFIL CITRATE
     Dosage: 20 MG, TID
     Route: 048
  22. HEPARIN [Concomitant]
     Active Substance: HEPARIN SODIUM
     Dosage: UNK
     Dates: start: 20170515
  23. PROPOFOL. [Concomitant]
     Active Substance: PROPOFOL
     Dosage: UNK
     Dates: start: 20170515
  24. XANAX [Concomitant]
     Active Substance: ALPRAZOLAM
  25. BACLOFEN. [Concomitant]
     Active Substance: BACLOFEN
     Dosage: 10 MG, QPM
     Route: 048
     Dates: start: 20170515
  26. FLONASE [Concomitant]
     Active Substance: FLUTICASONE PROPIONATE
     Dosage: UNK
     Dates: start: 20170515
  27. IPRATROPIUM [Concomitant]
     Active Substance: IPRATROPIUM
  28. FOLIC ACID. [Concomitant]
     Active Substance: FOLIC ACID
  29. LASIX [Concomitant]
     Active Substance: FUROSEMIDE
     Dosage: 60 MG, QD
     Route: 042
  30. ACETAMINOPHEN. [Concomitant]
     Active Substance: ACETAMINOPHEN
     Dosage: UNK
     Dates: start: 20170515
  31. FUROSEMIDE. [Concomitant]
     Active Substance: FUROSEMIDE
     Dosage: 60 MG, BID
     Route: 048
  32. ALBUTEROL. [Concomitant]
     Active Substance: ALBUTEROL
     Indication: WHEEZING
     Dosage: 1 PUFF, Q6HRS PRN
  33. FINASTERIDE. [Concomitant]
     Active Substance: FINASTERIDE
  34. METOPROLOL TARTRATE. [Concomitant]
     Active Substance: METOPROLOL TARTRATE
     Dosage: 12.5 MG, BID
     Route: 048
  35. OPSUMIT [Suspect]
     Active Substance: MACITENTAN
     Indication: PULMONARY ARTERIAL HYPERTENSION
     Dosage: 10 MG, QD
     Route: 048
     Dates: start: 20151028
  36. CLARITIN [Concomitant]
     Active Substance: LORATADINE
     Dosage: UNK
     Dates: start: 20170515
  37. OMEPRAZOLE. [Concomitant]
     Active Substance: OMEPRAZOLE
     Dosage: 40 MG, BID
     Route: 048
     Dates: start: 20170515
  38. CEFTRIAXONE. [Concomitant]
     Active Substance: CEFTRIAXONE
     Dosage: UNK
     Dates: start: 20170515
  39. FAMOTIDINE. [Concomitant]
     Active Substance: FAMOTIDINE
     Dosage: 40 MG, QD
     Route: 048
  40. FUROSEMIDE. [Concomitant]
     Active Substance: FUROSEMIDE
     Dosage: 20 MG, QD
     Route: 048
  41. FLUTICASONE. [Concomitant]
     Active Substance: FLUTICASONE
     Indication: HYPERSENSITIVITY
     Dosage: 1 SPRAY EACH NOSTRIL, BID PRN
  42. OXYGEN. [Concomitant]
     Active Substance: OXYGEN
     Dosage: UNK

REACTIONS (37)
  - Mental status changes [Recovered/Resolved]
  - Fall [Recovered/Resolved]
  - Swelling [Recovering/Resolving]
  - Pulmonary hypertension [Unknown]
  - Hospitalisation [Unknown]
  - Peripheral swelling [Unknown]
  - Spinal fracture [Recovered/Resolved]
  - Restless legs syndrome [Unknown]
  - Clavicle fracture [Recovered/Resolved]
  - Fluid overload [Recovering/Resolving]
  - Blood alkaline phosphatase increased [Unknown]
  - Syncope [Recovering/Resolving]
  - Blood bilirubin increased [Unknown]
  - Cough [Recovering/Resolving]
  - Urinary retention [Recovering/Resolving]
  - Thinking abnormal [Unknown]
  - Productive cough [Unknown]
  - Lacrimation increased [Unknown]
  - Cardiac failure [Recovered/Resolved with Sequelae]
  - Cellulitis [Unknown]
  - Facial bones fracture [Recovered/Resolved]
  - Oedema peripheral [Recovering/Resolving]
  - Epistaxis [Unknown]
  - Gastrooesophageal reflux disease [Unknown]
  - Respiratory failure [Recovered/Resolved]
  - Left ventricular failure [Recovered/Resolved with Sequelae]
  - Dry mouth [Unknown]
  - Pulmonary arterial hypertension [Recovered/Resolved with Sequelae]
  - Cardiac failure acute [Unknown]
  - Scrotal oedema [Recovering/Resolving]
  - Atrial fibrillation [Recovering/Resolving]
  - Loss of consciousness [Recovered/Resolved]
  - Aspartate aminotransferase increased [Recovered/Resolved]
  - Condition aggravated [Recovering/Resolving]
  - Erythema [Unknown]
  - Benign prostatic hyperplasia [Recovering/Resolving]
  - Dizziness [Unknown]

NARRATIVE: CASE EVENT DATE: 20170515
